FAERS Safety Report 5450687-X (Version None)
Quarter: 2007Q3

REPORT INFORMATION
  Report Type: 
  Country: None (occurrence: None)
  Receive Date: 20070910
  Receipt Date: 20070904
  Transmission Date: 20080115
  Serious: Yes (Other)
  Sender: FDA-Public Use
  Company Number: 2007327966

PATIENT
  Age: 41 Year
  Sex: Female
  Weight: 65.7716 kg

DRUGS (1)
  1. LISTERINE WHITENING PRE-BRUSH RINSE (NO ACTIVE INGREDIENT) [Suspect]
     Indication: DENTAL CARE
     Dosage: 3 TSP ONCE, ORAL
     Route: 048
     Dates: start: 20070801, end: 20070801

REACTIONS (4)
  - GINGIVAL PAIN [None]
  - LIP SWELLING [None]
  - OEDEMA MOUTH [None]
  - STOMATITIS [None]
